FAERS Safety Report 16801311 (Version 1)
Quarter: 2019Q3

REPORT INFORMATION
  Report Type: Spontaneous
  Country: US (occurrence: US)
  Receive Date: 20190912
  Receipt Date: 20190912
  Transmission Date: 20191005
  Serious: Yes (Death, Hospitalization, Other)
  Sender: FDA-Public Use
  Company Number: US-GILEAD-2019-0427565

PATIENT
  Age: 56 Year
  Sex: Male

DRUGS (4)
  1. STRIBILD [Suspect]
     Active Substance: COBICISTAT\ELVITEGRAVIR\EMTRICITABINE\TENOFOVIR DISOPROXIL FUMARATE
     Indication: HIV INFECTION
     Route: 065
  2. TENOFOVIR [Concomitant]
     Active Substance: TENOFOVIR
  3. VIREAD [Suspect]
     Active Substance: TENOFOVIR DISOPROXIL FUMARATE
     Indication: HEPATITIS B
     Route: 065
  4. ENTECAVIR. [Concomitant]
     Active Substance: ENTECAVIR

REACTIONS (3)
  - Hepatitis B reactivation [Unknown]
  - Acute hepatic failure [Fatal]
  - Chronic kidney disease [Unknown]
